FAERS Safety Report 7269557-X (Version None)
Quarter: 2011Q1

REPORT INFORMATION
  Report Type: 
  Country: None (occurrence: None)
  Receive Date: 20110125
  Receipt Date: 20110112
  Transmission Date: 20110831
  Serious: Yes (Other)
  Sender: FDA-Public Use
  Company Number: 025329

PATIENT
  Age: 44 Year
  Sex: Female

DRUGS (2)
  1. TEGRETOL [Concomitant]
  2. KEPPRA [Suspect]
     Indication: CONVULSION
     Dosage: (500 MG) (DOSE REDUCED TO 1 TABLET PER DAY) (375 MG, DOSE INCREASED TO 375 MG DAILY)
     Dates: start: 20040101

REACTIONS (2)
  - IMPAIRED WORK ABILITY [None]
  - COGNITIVE DISORDER [None]
